FAERS Safety Report 5272402-5 (Version None)
Quarter: 2007Q1

REPORT INFORMATION
  Report Type: 
  Country: None (occurrence: None)
  Receive Date: 20070322
  Receipt Date: 20070312
  Transmission Date: 20070707
  Serious: Yes (Other)
  Sender: FDA-Public Use
  Company Number: PHNU2007DE01150

PATIENT
  Sex: Female

DRUGS (3)
  1. AREDIA [Suspect]
     Dosage: 30 MG, UNK
     Route: 042
  2. AREDIA [Suspect]
     Dosage: 90 MG, UNK
     Route: 042
  3. DIALYSIS [Concomitant]
     Route: 065

REACTIONS (1)
  - OSTEONECROSIS [None]
